FAERS Safety Report 20446412 (Version 8)
Quarter: 2022Q4

REPORT INFORMATION
  Report Type: Spontaneous
  Country: JP (occurrence: JP)
  Receive Date: 20220208
  Receipt Date: 20221107
  Transmission Date: 20230112
  Serious: Yes (Death, Life-Threatening, Hospitalization, Other)
  Sender: FDA-Public Use
  Company Number: JP-BRISTOL-MYERS SQUIBB COMPANY-BMS-2021-122013

PATIENT
  Age: 63 Year
  Sex: Male
  Weight: 47.8 kg

DRUGS (23)
  1. YERVOY [Suspect]
     Active Substance: IPILIMUMAB
     Indication: Non-small cell lung cancer recurrent
     Dosage: 1 MG/KG, Q6W
     Route: 041
     Dates: start: 20211020, end: 20211020
  2. OPDIVO [Suspect]
     Active Substance: NIVOLUMAB
     Indication: Non-small cell lung cancer recurrent
     Dosage: CONCENTRATE FOR SOLUTION FOR INFUSION
     Route: 041
     Dates: start: 20211020, end: 20211020
  3. PARAPLATIN [Suspect]
     Active Substance: CARBOPLATIN
     Indication: Non-small cell lung cancer recurrent
     Dosage: UNK
     Route: 065
     Dates: start: 20211020
  4. PACLITAXEL [Suspect]
     Active Substance: PACLITAXEL
     Indication: Non-small cell lung cancer recurrent
     Dosage: UNK
     Route: 065
     Dates: start: 20211020
  5. OXYCODONE [Concomitant]
     Active Substance: OXYCODONE
     Indication: Non-small cell lung cancer recurrent
     Route: 048
  6. OXYCODONE [Concomitant]
     Active Substance: OXYCODONE
     Dosage: 10 MG, Q12H
     Route: 048
  7. OXYCODONE [Concomitant]
     Active Substance: OXYCODONE
     Dosage: 10 MG, Q12H
     Route: 048
  8. NOVAMIN [Concomitant]
     Indication: Prophylaxis
     Route: 048
  9. MAGNESIUM [Concomitant]
     Active Substance: MAGNESIUM
     Indication: Prophylaxis
     Route: 048
  10. LOXOPROFEN [Concomitant]
     Active Substance: LOXOPROFEN
     Indication: Non-small cell lung cancer recurrent
     Route: 048
  11. LOXOPROFEN [Concomitant]
     Active Substance: LOXOPROFEN
     Dosage: 60 MG, Q8H
     Route: 048
  12. LOXOPROFEN [Concomitant]
     Active Substance: LOXOPROFEN
     Dosage: 60 MG, Q8H
     Route: 048
  13. DECADRON [Concomitant]
     Active Substance: DEXAMETHASONE
     Indication: Non-small cell lung cancer recurrent
     Route: 048
  14. ISOSORBIDE [Concomitant]
     Active Substance: ISOSORBIDE
     Indication: Non-small cell lung cancer recurrent
     Dosage: 30 ML
     Route: 048
  15. SULFAMETHOXAZOLE\TRIMETHOPRIM [Concomitant]
     Active Substance: SULFAMETHOXAZOLE\TRIMETHOPRIM
     Indication: Prophylaxis
     Dosage: 1 DOSAGE FORM
     Route: 048
  16. FUROSEMIDE [Concomitant]
     Active Substance: FUROSEMIDE
     Indication: Non-small cell lung cancer recurrent
     Route: 048
  17. FUROSEMIDE [Concomitant]
     Active Substance: FUROSEMIDE
     Dosage: 20 MG, EVERYDAY
     Route: 048
  18. FUROSEMIDE [Concomitant]
     Active Substance: FUROSEMIDE
     Dosage: 20 MG, EVERYDAY
     Route: 048
  19. AMLODIPINE [Concomitant]
     Active Substance: AMLODIPINE BESYLATE
     Indication: Product used for unknown indication
     Route: 048
  20. AMLODIPINE [Concomitant]
     Active Substance: AMLODIPINE BESYLATE
     Dosage: 10 MG, EVERYDAY
     Route: 048
  21. AMLODIPINE [Concomitant]
     Active Substance: AMLODIPINE BESYLATE
     Dosage: 10 MG, EVERYDAY
     Route: 048
  22. ELDECALCITOL [Concomitant]
     Active Substance: ELDECALCITOL
     Indication: Product used for unknown indication
     Dosage: 0.75 MICROGRAM, QD
     Route: 048
  23. VONOPRAZAN FUMARATE [Concomitant]
     Active Substance: VONOPRAZAN FUMARATE
     Indication: Prophylaxis
     Route: 048

REACTIONS (5)
  - Malignant neoplasm progression [Fatal]
  - Pulmonary toxicity [Not Recovered/Not Resolved]
  - Febrile neutropenia [Recovered/Resolved]
  - Thrombocytopenia [Not Recovered/Not Resolved]
  - General physical health deterioration [Unknown]

NARRATIVE: CASE EVENT DATE: 20211024
